FAERS Safety Report 10565765 (Version 2)
Quarter: 2017Q1

REPORT INFORMATION
  Report Type: Report from Study
  Country: US (occurrence: US)
  Receive Date: 20141105
  Receipt Date: 20170111
  Transmission Date: 20170428
  Serious: Yes (Life-Threatening, Other)
  Sender: FDA-Public Use
  Company Number: PHEH2014US021936

PATIENT
  Sex: Male

DRUGS (1)
  1. TOBI [Suspect]
     Active Substance: TOBRAMYCIN
     Indication: PRODUCT USED FOR UNKNOWN INDICATION
     Dosage: 300 MG/5 ML, BID (28 DAYS ON AND 28 DAYS OFF)
     Route: 055

REACTIONS (3)
  - Respiratory failure [Unknown]
  - Renal failure [Unknown]
  - Thermal burn [Unknown]

NARRATIVE: CASE EVENT DATE: 2011
